FAERS Safety Report 19212439 (Version 1)
Quarter: 2021Q2

REPORT INFORMATION
  Report Type: Spontaneous
  Country: US (occurrence: US)
  Receive Date: 20210504
  Receipt Date: 20210504
  Transmission Date: 20210717
  Serious: No
  Sender: FDA-Public Use
  Company Number: US-ASTRAZENECA-2021A285469

PATIENT
  Age: 12038 Day
  Sex: Male
  Weight: 106.1 kg

DRUGS (1)
  1. BYDUREON BCISE [Suspect]
     Active Substance: EXENATIDE
     Indication: TYPE 2 DIABETES MELLITUS
     Route: 058
     Dates: start: 20210329

REACTIONS (4)
  - Injury associated with device [Recovering/Resolving]
  - Wrong technique in device usage process [Recovering/Resolving]
  - Device mechanical issue [Unknown]
  - Needle track marks [Recovering/Resolving]

NARRATIVE: CASE EVENT DATE: 20210405
